FAERS Safety Report 8005374-0 (Version None)
Quarter: 2011Q4

REPORT INFORMATION
  Report Type: 
  Country: None (occurrence: None)
  Receive Date: 20111223
  Receipt Date: 20111214
  Transmission Date: 20120403
  Serious: Yes (Other)
  Sender: FDA-Public Use
  Company Number: SE-ROCHE-1023792

PATIENT
  Age: 83 Year
  Sex: Male

DRUGS (2)
  1. LUCENTIS [Suspect]
     Dosage: STRENGTH: 10 MG/ML
     Route: 050
     Dates: start: 20111122
  2. LUCENTIS [Suspect]
     Indication: MACULAR DEGENERATION
     Dosage: STRENGTH: 10 MG/ML
     Route: 050
     Dates: start: 20110726, end: 20110921

REACTIONS (1)
  - RETINAL PIGMENT EPITHELIAL TEAR [None]
